FAERS Safety Report 6936573-4 (Version None)
Quarter: 2010Q3

REPORT INFORMATION
  Report Type: 
  Country: None (occurrence: None)
  Receive Date: 20100823
  Receipt Date: 20100817
  Transmission Date: 20110219
  Serious: Yes (Other)
  Sender: FDA-Public Use
  Company Number: EG-ROCHE-719095

PATIENT
  Sex: Female

DRUGS (4)
  1. TOCILIZUMAB [Suspect]
     Indication: RHEUMATOID ARTHRITIS
     Dosage: ROUTE: I.V.I, FORM: INFUSION (I.V.I), PERMANENTLY DISCONTINUED
     Route: 042
     Dates: start: 20100310, end: 20100803
  2. METHOTREXATE [Suspect]
     Indication: RHEUMATOID ARTHRITIS
     Dosage: LAST DOSE PRIOR TO SAE: 03 AUGUST 2010
     Route: 058
     Dates: start: 20100310
  3. FOLIC ACID [Concomitant]
     Route: 065
     Dates: start: 20080211
  4. PREDNISOLONE [Concomitant]
     Dates: start: 20100211

REACTIONS (1)
  - HAEMOPTYSIS [None]
